FAERS Safety Report 6978272-9 (Version None)
Quarter: 2010Q3

REPORT INFORMATION
  Report Type: 
  Country: None (occurrence: None)
  Receive Date: 20100913
  Receipt Date: 20100906
  Transmission Date: 20110219
  Serious: Yes (Life-Threatening, Hospitalization, Disabling)
  Sender: FDA-Public Use
  Company Number: PHHY2010DK58451

PATIENT
  Sex: Male

DRUGS (2)
  1. VOLTAREN [Suspect]
     Indication: PAIN
     Dates: start: 20070101
  2. ACETAMINOPHEN [Suspect]

REACTIONS (22)
  - ABDOMINAL DISTENSION [None]
  - ABDOMINAL PAIN UPPER [None]
  - CHOLECYSTECTOMY [None]
  - DUODENAL PERFORATION [None]
  - DUODENAL ULCER HAEMORRHAGE [None]
  - DUODENAL ULCER REPAIR [None]
  - DUODENECTOMY [None]
  - DYSPEPSIA [None]
  - EATING DISORDER [None]
  - ERYTHEMA [None]
  - FATIGUE [None]
  - GASTRECTOMY [None]
  - GASTROOESOPHAGEAL REFLUX DISEASE [None]
  - HAEMATEMESIS [None]
  - NAUSEA [None]
  - POST PROCEDURAL BILE LEAK [None]
  - PURULENT DISCHARGE [None]
  - SCAR [None]
  - SKIN GRAFT [None]
  - SKIN INFECTION [None]
  - STAPHYLOCOCCAL INFECTION [None]
  - THROMBOSIS [None]
